FAERS Safety Report 6982786-5 (Version None)
Quarter: 2010Q3

REPORT INFORMATION
  Report Type: 
  Country: None (occurrence: None)
  Receive Date: 20100914
  Receipt Date: 20100415
  Transmission Date: 20110219
  Serious: Yes (Other)
  Sender: FDA-Public Use
  Company Number: US-PFIZER INC-2010048181

PATIENT
  Sex: Female
  Weight: 77.551 kg

DRUGS (6)
  1. LYRICA [Suspect]
     Indication: FIBROMYALGIA
     Dosage: 100 MG, 3X/DAY
     Route: 048
     Dates: start: 20070501
  2. VICODIN [Concomitant]
     Indication: PAIN
     Dosage: HYDROCORDONE 5MG/PARACETAMOL 500MG
     Route: 048
  3. AMITRIPTYLINE [Concomitant]
     Indication: SLEEP DISORDER
     Dosage: 10 MG, 1X/DAY
     Route: 048
     Dates: start: 20070101
  4. DARVOCET-N 100 [Concomitant]
     Indication: PAIN
     Dosage: PROPOXYPHENE 100MG/PARACETAMOL 650MG
     Route: 048
     Dates: start: 20070101
  5. DAYPRO [Concomitant]
     Indication: FIBROMYALGIA
     Dosage: 600 MG, 2X/DAY
  6. FLEXERIL [Concomitant]
     Indication: MUSCLE RELAXANT THERAPY
     Dosage: 10 MG, 1X/DAY
     Route: 048

REACTIONS (3)
  - DRUG INEFFECTIVE [None]
  - SWELLING [None]
  - WEIGHT INCREASED [None]
